FAERS Safety Report 8268179-1 (Version None)
Quarter: 2012Q2

REPORT INFORMATION
  Report Type: 
  Country: None (occurrence: None)
  Receive Date: 20120409
  Receipt Date: 20120229
  Transmission Date: 20120825
  Serious: Yes (Life-Threatening, Hospitalization)
  Sender: FDA-Public Use
  Company Number: US-ROCHE-1054260

PATIENT
  Sex: Female

DRUGS (2)
  1. AVASTIN [Suspect]
     Indication: OVARIAN CANCER
     Route: 042
     Dates: start: 20101109, end: 20110525
  2. PEMETREXED DISODIUM [Suspect]
     Indication: OVARIAN CANCER
     Route: 042
     Dates: start: 20101109, end: 20110525

REACTIONS (1)
  - MYELODYSPLASTIC SYNDROME [None]
